FAERS Safety Report 6632004-2 (Version None)
Quarter: 2010Q1

REPORT INFORMATION
  Report Type: 
  Country: None (occurrence: None)
  Receive Date: 20100312
  Receipt Date: 20090609
  Transmission Date: 20100710
  Serious: No
  Sender: FDA-Public Use
  Company Number: US-BIOGENIDEC-2009BI017627

PATIENT
  Sex: Female

DRUGS (1)
  1. AVONEX [Suspect]
     Indication: MULTIPLE SCLEROSIS
     Route: 030
     Dates: start: 20090221

REACTIONS (5)
  - DIARRHOEA [None]
  - ERUCTATION [None]
  - HAEMATOCHEZIA [None]
  - RENAL PAIN [None]
  - TREMOR [None]
